FAERS Safety Report 6863521-8 (Version None)
Quarter: 2010Q3

REPORT INFORMATION
  Report Type: 
  Country: None (occurrence: None)
  Receive Date: 20100720
  Receipt Date: 20100713
  Transmission Date: 20110219
  Serious: Yes (Death, Hospitalization, Other)
  Sender: FDA-Public Use
  Company Number: WAES 1006USA01306

PATIENT
  Age: 67 Year
  Sex: Male

DRUGS (7)
  1. ZOCOR [Suspect]
     Indication: ACUTE CORONARY SYNDROME
     Dosage: 40 MG/DAILY PO
     Route: 048
     Dates: start: 20091204, end: 20100601
  2. PLACEBO (UNSPECIFIED [Suspect]
     Indication: ACUTE CORONARY SYNDROME
     Dosage: 1 TAB/DAILY PO
     Route: 048
     Dates: start: 20091204, end: 20100601
  3. TAB PLACEBO (UNSPECIFIED) [Suspect]
     Indication: ACUTE CORONARY SYNDROME
     Dosage: 1 TAB/DAILY PO
     Route: 048
     Dates: start: 20091204, end: 20100601
  4. ASPIRIN [Concomitant]
  5. CAPTOPRIL [Concomitant]
  6. CLOPIDOGREL BISULFATE [Concomitant]
  7. PROPRANOLOL HYDROCHLORIDE [Concomitant]

REACTIONS (6)
  - ABDOMINAL DISTENSION [None]
  - GASTRIC CANCER [None]
  - LYMPHADENOPATHY MEDIASTINAL [None]
  - OESOPHAGEAL NEOPLASM [None]
  - PNEUMONIA [None]
  - POST PROCEDURAL COMPLICATION [None]
